FAERS Safety Report 18327702 (Version 2)
Quarter: 2020Q4

REPORT INFORMATION
  Report Type: Spontaneous
  Country: SG (occurrence: SG)
  Receive Date: 20200930
  Receipt Date: 20201008
  Transmission Date: 20210113
  Serious: Yes (Other)
  Sender: FDA-Public Use
  Company Number: SG-GLAXOSMITHKLINE-SG2020APC193494

PATIENT
  Age: 52 Year
  Sex: Female

DRUGS (1)
  1. DICLOFENAC [Suspect]
     Active Substance: DICLOFENAC
     Indication: PRODUCT USED FOR UNKNOWN INDICATION
     Dosage: UNK

REACTIONS (5)
  - Dyspnoea [Unknown]
  - Pruritus [Unknown]
  - Syncope [Unknown]
  - Hypoaesthesia oral [Unknown]
  - Urticaria [Unknown]

NARRATIVE: CASE EVENT DATE: 20200826
